FAERS Safety Report 10064321 (Version 2)
Quarter: 2014Q2

REPORT INFORMATION
  Report Type: Spontaneous
  Country: GB (occurrence: GB)
  Receive Date: 20140408
  Receipt Date: 20140421
  Transmission Date: 20141212
  Serious: Yes (Hospitalization)
  Sender: FDA-Public Use
  Company Number: GB-JNJFOC-20140316880

PATIENT
  Sex: Male
  Weight: 18.3 kg

DRUGS (1)
  1. CALPOL SIX PLUS [Suspect]
     Indication: PRODUCT USED FOR UNKNOWN INDICATION
     Dosage: 250MG/5ML (3.2G) EQUIVALENT TO 175MG/KG
     Route: 048

REACTIONS (2)
  - Overdose [Unknown]
  - Product packaging issue [Unknown]
